FAERS Safety Report 8447330-4 (Version None)
Quarter: 2012Q2

REPORT INFORMATION
  Report Type: 
  Country: None (occurrence: None)
  Receive Date: 20120619
  Receipt Date: 20120614
  Transmission Date: 20120825
  Serious: Yes (Hospitalization, Other)
  Sender: FDA-Public Use
  Company Number: PHHY2012MX047286

PATIENT
  Sex: Female

DRUGS (9)
  1. EXFORGE HCT [Suspect]
     Indication: HYPERTENSION
     Dosage: 1 DF (VALS 320 MG, AMLO 10 MG HYDR 25 MG), DAILY
  2. PENTOXIFYLLINE [Concomitant]
     Dosage: 400 MG, DAILY
  3. SPIRIVA [Concomitant]
     Dosage: 1 DF, DAILY
  4. METFORMIN HCL [Concomitant]
     Dosage: 1 DF, DAILY
  5. ACETAMINOPHEN [Concomitant]
     Dosage: 1 DF, DAILY
  6. INSULIN [Concomitant]
     Dosage: 23 IU, UNK
  7. ASPIRIN [Concomitant]
     Dosage: 100 MG, DAILY
  8. NIMOTOP [Concomitant]
     Dosage: 30 MG, DAILY
  9. PLAVIX [Concomitant]
     Dosage: 1 DF, DAILY
     Dates: start: 20100101

REACTIONS (3)
  - DEAFNESS [None]
  - CEREBROVASCULAR ACCIDENT [None]
  - INFARCTION [None]
